FAERS Safety Report 10234788 (Version 1)
Quarter: 2014Q1

REPORT INFORMATION
  Report Type: Spontaneous
  Country: US (occurrence: None)
  Receive Date: 20140306
  Receipt Date: 20140306
  Transmission Date: 20141002
  Serious: Yes (Hospitalization)
  Sender: FDA-Public Use
  Company Number: 163-21880-13050469

PATIENT
  Age: 64 Year
  Sex: Female
  Weight: 45.81 kg

DRUGS (7)
  1. REVLIMID (LENALIDOMIDE) (25 MILLIGRAM, CAPSULES) [Suspect]
     Indication: PLASMA CELL MYELOMA
     Route: 048
     Dates: start: 20110308
  2. COMPAZINE (PROCHLORPERAZINE EDISYLATE) [Concomitant]
  3. ZOLOFT (SERTRALINE HYDROCHLORIDE) [Concomitant]
  4. VALTREX (VALACICLOVIR HYDROCHLORIDE) [Concomitant]
  5. PROTONIX (PANTOPRAZOLE SODIUM) [Concomitant]
  6. LOMOTIL (LOMOTIL) [Concomitant]
  7. HYDROCODONE (HYDROCODONE) [Concomitant]

REACTIONS (1)
  - Plasma cell myeloma [None]
